FAERS Safety Report 23795355 (Version 5)
Quarter: 2024Q3

REPORT INFORMATION
  Report Type: Spontaneous
  Country: US (occurrence: US)
  Receive Date: 20240429
  Receipt Date: 20240709
  Transmission Date: 20241017
  Serious: Yes (Hospitalization, Other)
  Sender: PFIZER
  Company Number: US-PFIZER INC-PV202400054914

PATIENT
  Age: 74 Year
  Sex: Female

DRUGS (3)
  1. IBRANCE [Suspect]
     Active Substance: PALBOCICLIB
     Dosage: 100 MG
     Dates: end: 202405
  2. AMLODIPINE [Suspect]
     Active Substance: AMLODIPINE BESYLATE
     Indication: Blood pressure abnormal
     Dosage: UNK
  3. CARVEDILOL [Suspect]
     Active Substance: CARVEDILOL
     Indication: Blood pressure measurement
     Dosage: UNK

REACTIONS (9)
  - Pneumonia [Unknown]
  - Fatigue [Not Recovered/Not Resolved]
  - Upper respiratory tract infection [Unknown]
  - Somnolence [Unknown]
  - Hypotension [Unknown]
  - Full blood count decreased [Unknown]
  - White blood cell count decreased [Unknown]
  - Haemoglobin abnormal [Unknown]
  - Cough [Not Recovered/Not Resolved]

NARRATIVE: CASE EVENT DATE: 20240501
